FAERS Safety Report 4589003-4 (Version None)
Quarter: 2005Q1

REPORT INFORMATION
  Report Type: 
  Country: None (occurrence: None)
  Receive Date: 20050125
  Receipt Date: 20041014
  Transmission Date: 20050727
  Serious: No
  Sender: FDA-Public Use
  Company Number: USA041081193

PATIENT
  Age: 85 Year
  Sex: Female

DRUGS (3)
  1. FORTEO [Suspect]
     Indication: OSTEOPOROSIS
     Dates: start: 20040823, end: 20040824
  2. DOXYCYCLINE [Concomitant]
  3. TRIAMTERENE [Concomitant]

REACTIONS (6)
  - DECREASED APPETITE [None]
  - DIFFICULTY IN WALKING [None]
  - FATIGUE [None]
  - FEELING ABNORMAL [None]
  - JOINT SWELLING [None]
  - NAUSEA [None]
